FAERS Safety Report 14371646 (Version 3)
Quarter: 2018Q1

REPORT INFORMATION
  Report Type: Spontaneous
  Country: US (occurrence: US)
  Receive Date: 20180110
  Receipt Date: 20180223
  Transmission Date: 20180509
  Serious: Yes (Hospitalization, Other)
  Sender: FDA-Public Use
  Company Number: US-GLAXOSMITHKLINE-US2018002350

PATIENT
  Age: 81 Year
  Sex: Female

DRUGS (16)
  1. ADVAIR HFA [Suspect]
     Active Substance: FLUTICASONE PROPIONATE\SALMETEROL XINAFOATE
     Dosage: 2 PUFF(S), BID
     Route: 055
  2. ISOSORBIDE. [Concomitant]
     Active Substance: ISOSORBIDE
  3. NOVOLOG [Concomitant]
     Active Substance: INSULIN ASPART
  4. CRANBERRY. [Concomitant]
     Active Substance: CRANBERRY
  5. GINGER. [Concomitant]
     Active Substance: GINGER
  6. FLAX SEED [Concomitant]
     Active Substance: FLAX SEED
  7. LANTUS [Concomitant]
     Active Substance: INSULIN GLARGINE
  8. METAMUCIL [Concomitant]
     Active Substance: PLANTAGO SEED
  9. BYSTOLIC [Concomitant]
     Active Substance: NEBIVOLOL HYDROCHLORIDE
  10. LOSARTAN POTASSIUM. [Concomitant]
     Active Substance: LOSARTAN POTASSIUM
  11. SENOKOT [Concomitant]
     Active Substance: SENNOSIDES
  12. ASPIRIN (BABY) [Concomitant]
     Active Substance: ASPIRIN
  13. CINNAMON. [Concomitant]
     Active Substance: CINNAMON
  14. PREDNISONE. [Concomitant]
     Active Substance: PREDNISONE
  15. ADVAIR HFA [Suspect]
     Active Substance: FLUTICASONE PROPIONATE\SALMETEROL XINAFOATE
     Indication: LUNG DISORDER
     Dosage: 2 PUFF(S), BID
     Route: 055
     Dates: start: 2015
  16. VERAPAMIL [Concomitant]
     Active Substance: VERAPAMIL HYDROCHLORIDE

REACTIONS (8)
  - Visual impairment [Unknown]
  - Pulmonary vascular disorder [Unknown]
  - Product use in unapproved indication [Unknown]
  - Product quality issue [Unknown]
  - Pneumonia [Recovered/Resolved]
  - Arteriosclerosis [Recovering/Resolving]
  - Drug dose omission [Unknown]
  - Haemorrhoids [Recovering/Resolving]

NARRATIVE: CASE EVENT DATE: 2015
